FAERS Safety Report 4307261-8 (Version None)
Quarter: 2004Q1

REPORT INFORMATION
  Report Type: 
  Country: None (occurrence: None)
  Receive Date: 20040223
  Receipt Date: 20031210
  Transmission Date: 20041129
  Serious: No
  Sender: FDA-Public Use
  Company Number: 203758

PATIENT
  Age: 44 Year
  Sex: Female
  Weight: 88 kg

DRUGS (1)
  1. RAPTIVA [Suspect]
     Indication: PSORIASIS
     Dosage: 84 MG, 1 WEEK, SUBCUTANEOUS
     Route: 058
     Dates: start: 20031120, end: 20031121

REACTIONS (1)
  - MENINGITIS ASEPTIC [None]
